FAERS Safety Report 21626362 (Version 3)
Quarter: 2023Q2

REPORT INFORMATION
  Report Type: Report from Study
  Country: US (occurrence: US)
  Receive Date: 20221122
  Receipt Date: 20230627
  Transmission Date: 20230721
  Serious: Yes (Other)
  Sender: FDA-Public Use
  Company Number: US-002147023-NVSC2022US258443

PATIENT
  Age: 8 Year
  Sex: Male

DRUGS (5)
  1. ILARIS [Suspect]
     Active Substance: CANAKINUMAB
     Indication: Pyrexia
     Dosage: 45 MG, Q4W (EVERY 4 WEEKS)
     Route: 058
     Dates: start: 20221017
  2. ILARIS [Suspect]
     Active Substance: CANAKINUMAB
     Dosage: 100 MG, Q4W (EVERY 4 WEEKS)
     Route: 058
  3. ILARIS [Suspect]
     Active Substance: CANAKINUMAB
     Dosage: UNK
     Route: 065
     Dates: start: 20221113
  4. ILARIS [Suspect]
     Active Substance: CANAKINUMAB
     Dosage: UNK
     Route: 065
     Dates: start: 202211
  5. ILARIS [Suspect]
     Active Substance: CANAKINUMAB
     Dosage: UNK
     Route: 065
     Dates: start: 20230619

REACTIONS (8)
  - Lethargy [Unknown]
  - Abdominal discomfort [Unknown]
  - Headache [Unknown]
  - Chest discomfort [Unknown]
  - Body temperature increased [Unknown]
  - Pyrexia [Unknown]
  - Musculoskeletal stiffness [Unknown]
  - Inappropriate schedule of product administration [Unknown]

NARRATIVE: CASE EVENT DATE: 20221114
